FAERS Safety Report 16816435 (Version 1)
Quarter: 2019Q3

REPORT INFORMATION
  Report Type: Spontaneous
  Country: US (occurrence: US)
  Receive Date: 20190917
  Receipt Date: 20190917
  Transmission Date: 20191005
  Serious: No
  Sender: FDA-Public Use
  Company Number: US-RECKITT BENCKISER HEALTHCARE INT LIMITED-RB-83857-2019

PATIENT
  Age: 64 Year
  Sex: Male

DRUGS (3)
  1. CLONAZEPAM. [Concomitant]
     Active Substance: CLONAZEPAM
     Indication: PRODUCT USED FOR UNKNOWN INDICATION
     Dosage: UNK
     Route: 065
  2. MUCINEX [Suspect]
     Active Substance: GUAIFENESIN
     Indication: PRODUCT USED FOR UNKNOWN INDICATION
     Dosage: 600 MILLIGRAM, QD
     Route: 065
     Dates: start: 20190402
  3. MUCINEX [Suspect]
     Active Substance: GUAIFENESIN
     Dosage: 1200 MILLIGRAM, UNK
     Route: 065

REACTIONS (4)
  - Anxiety [Recovered/Resolved]
  - Tremor [Recovered/Resolved]
  - Panic attack [Recovered/Resolved]
  - Hyperhidrosis [Recovered/Resolved]
